FAERS Safety Report 4296884-0 (Version None)
Quarter: 2004Q1

REPORT INFORMATION
  Report Type: 
  Country: None (occurrence: None)
  Receive Date: 20040126
  Receipt Date: 20031008
  Transmission Date: 20041129
  Serious: No
  Sender: FDA-Public Use
  Company Number: USA030435449

PATIENT
  Age: 50 Year
  Sex: Male

DRUGS (2)
  1. STRATTERA [Suspect]
     Dosage: 40 MG/DAY
  2. REMERON [Concomitant]

REACTIONS (3)
  - FEELING ABNORMAL [None]
  - PAIN [None]
  - SEDATION [None]
